FAERS Safety Report 8406020-4 (Version None)
Quarter: 2012Q2

REPORT INFORMATION
  Report Type: 
  Country: None (occurrence: None)
  Receive Date: 20120529
  Receipt Date: 20101019
  Transmission Date: 20120825
  Serious: Yes (Hospitalization, Other)
  Sender: FDA-Public Use
  Company Number: 011267

PATIENT
  Age: 88 Year
  Sex: Male

DRUGS (2)
  1. PLETAL [Suspect]
     Indication: PERIPHERAL ARTERIAL OCCLUSIVE DISEASE
     Dosage: 100 MG, BID, ORAL
     Route: 048
     Dates: start: 20090707, end: 20091023
  2. SPIRIVA [Concomitant]

REACTIONS (2)
  - PERIPHERAL ARTERIAL OCCLUSIVE DISEASE [None]
  - ARTERIOSCLEROSIS [None]
